FAERS Safety Report 26140803 (Version 1)
Quarter: 2025Q4

REPORT INFORMATION
  Report Type: Spontaneous
  Country: EU (occurrence: EU)
  Receive Date: 20251210
  Receipt Date: 20251210
  Transmission Date: 20260117
  Serious: Yes (Hospitalization)
  Sender: NOVARTIS
  Company Number: None

PATIENT
  Age: 69 Year
  Sex: Female

DRUGS (2)
  1. VALSARTAN [Interacting]
     Active Substance: VALSARTAN
     Indication: Product used for unknown indication
     Dosage: UNK (VALSARTAN ALMUS 80 MG COMPRIMIDOS RECUBIERTOS CON PELICULA EFG, 28 COMPRIMIDOS )
     Route: 065
     Dates: start: 20250501
  2. AMLODIPINE BESYLATE\OLMESARTAN MEDOXOMIL [Interacting]
     Active Substance: AMLODIPINE BESYLATE\OLMESARTAN MEDOXOMIL
     Indication: Product used for unknown indication
     Dosage: UNK, (OLMESARTAN/AMLODIPINO ALTER 40 MG/10 MG COMPRIMIDOS RECUBIERTOS CON PELICULA EFG, 28 COMPRIMID
     Route: 065
     Dates: start: 20210809

REACTIONS (3)
  - Hypotension [Recovered/Resolved]
  - Drug interaction [Recovered/Resolved]
  - Wrong product administered [Recovered/Resolved]

NARRATIVE: CASE EVENT DATE: 20250501
